FAERS Safety Report 5216262-7 (Version None)
Quarter: 2007Q1

REPORT INFORMATION
  Report Type: 
  Country: None (occurrence: None)
  Receive Date: 20070123
  Receipt Date: 20070112
  Transmission Date: 20070707
  Serious: Yes (Hospitalization)
  Sender: FDA-Public Use
  Company Number: NZ-BOEHRINGER INGELHEIM GMBH, GERMANY-2007-DE-00224GD

PATIENT
  Sex: Male

DRUGS (4)
  1. MORPHINE [Suspect]
     Indication: SEDATION
  2. MEXILETINE HYDROCHLORIDE [Suspect]
     Route: 015
  3. METHADONE [Suspect]
     Route: 015
  4. AMITRIPTYLINE HCL [Suspect]
     Route: 015

REACTIONS (2)
  - DRUG WITHDRAWAL SYNDROME [None]
  - PERSISTENT FOETAL CIRCULATION [None]
